FAERS Safety Report 20924819 (Version 5)
Quarter: 2023Q4

REPORT INFORMATION
  Report Type: Spontaneous
  Country: US (occurrence: US)
  Receive Date: 20220607
  Receipt Date: 20231031
  Transmission Date: 20240110
  Serious: No
  Sender: FDA-Public Use
  Company Number: US-PHARMAESSENTIA CORPORATION-US-2022-PEC-000541

PATIENT
  Sex: Female

DRUGS (4)
  1. BESREMI [Suspect]
     Active Substance: ROPEGINTERFERON ALFA-2B-NJFT
     Indication: Polycythaemia vera
     Dosage: 50 MICROGRAM, Q2W
     Route: 058
     Dates: start: 20220309
  2. BESREMI [Suspect]
     Active Substance: ROPEGINTERFERON ALFA-2B-NJFT
     Dosage: 100 MCG, Q2W
     Route: 058
  3. BESREMI [Suspect]
     Active Substance: ROPEGINTERFERON ALFA-2B-NJFT
     Dosage: UNK
     Route: 058
  4. JAKAFI [Concomitant]
     Active Substance: RUXOLITINIB
     Indication: Product used for unknown indication
     Route: 065

REACTIONS (11)
  - Thyroid disorder [Unknown]
  - Weight increased [Unknown]
  - Dehydration [Unknown]
  - Laboratory test abnormal [Unknown]
  - Platelet count increased [Unknown]
  - Product dose omission issue [Unknown]
  - Injection site pain [Recovering/Resolving]
  - Myalgia [Recovering/Resolving]
  - Insomnia [Recovering/Resolving]
  - Headache [Unknown]
  - Fatigue [Unknown]
